FAERS Safety Report 15627067 (Version 6)
Quarter: 2019Q2

REPORT INFORMATION
  Report Type: Spontaneous
  Country: US (occurrence: US)
  Receive Date: 20181116
  Receipt Date: 20190605
  Transmission Date: 20190711
  Serious: Yes (Other)
  Sender: FDA-Public Use
  Company Number: US-JNJFOC-20181118538

PATIENT
  Sex: Male

DRUGS (12)
  1. IMBRUVICA [Suspect]
     Active Substance: IBRUTINIB
     Indication: CHRONIC LYMPHOCYTIC LEUKAEMIA
     Route: 048
     Dates: start: 2018
  2. LOSARTIN [Concomitant]
     Active Substance: LOSARTAN
  3. AMLODIPINE [Concomitant]
     Active Substance: AMLODIPINE BESYLATE
  4. IMBRUVICA [Suspect]
     Active Substance: IBRUTINIB
     Indication: CHRONIC LYMPHOCYTIC LEUKAEMIA
     Route: 048
  5. IMBRUVICA [Suspect]
     Active Substance: IBRUTINIB
     Indication: CHRONIC LYMPHOCYTIC LEUKAEMIA
     Route: 048
  6. PANTOPRAZOLE [Concomitant]
     Active Substance: PANTOPRAZOLE
     Indication: GASTROOESOPHAGEAL REFLUX DISEASE
  7. ZOLOFT [Concomitant]
     Active Substance: SERTRALINE HYDROCHLORIDE
  8. IMBRUVICA [Suspect]
     Active Substance: IBRUTINIB
     Indication: CHRONIC LYMPHOCYTIC LEUKAEMIA
     Route: 048
     Dates: start: 20190529, end: 20190529
  9. METOPROLOL. [Concomitant]
     Active Substance: METOPROLOL
  10. MULTIVITAMINS [Concomitant]
     Active Substance: VITAMINS
  11. PRAVASTATIN. [Concomitant]
     Active Substance: PRAVASTATIN
  12. FISH OIL [Concomitant]
     Active Substance: FISH OIL

REACTIONS (17)
  - Papilloedema [Recovered/Resolved]
  - Cataract [Unknown]
  - Eye haemorrhage [Recovered/Resolved]
  - Sinus disorder [Not Recovered/Not Resolved]
  - Sleep apnoea syndrome [Not Recovered/Not Resolved]
  - Renal disorder [Unknown]
  - Angina bullosa haemorrhagica [Not Recovered/Not Resolved]
  - White blood cell count increased [Not Recovered/Not Resolved]
  - Cough [Not Recovered/Not Resolved]
  - Diabetes mellitus [Recovering/Resolving]
  - Blood creatinine increased [Not Recovered/Not Resolved]
  - Red blood cell count decreased [Not Recovered/Not Resolved]
  - Squamous cell carcinoma of skin [Unknown]
  - Hypertension [Recovering/Resolving]
  - Epistaxis [Not Recovered/Not Resolved]
  - Vitreous floaters [Recovered/Resolved]
  - Blood blister [Recovered/Resolved]
